FAERS Safety Report 6168600-9 (Version None)
Quarter: 2009Q2

REPORT INFORMATION
  Report Type: 
  Country: None (occurrence: None)
  Receive Date: 20090423
  Receipt Date: 20090408
  Transmission Date: 20091009
  Serious: Yes (Death)
  Sender: FDA-Public Use
  Company Number: 2009EU001617

PATIENT
  Age: 13 Year
  Sex: Male
  Weight: 53.3 kg

DRUGS (9)
  1. TACROLIMUS [Suspect]
     Indication: RENAL TRANSPLANT
     Dosage: 3 MG, BID, ORAL
     Route: 048
     Dates: start: 20081123, end: 20081125
  2. ASPIRIN [Concomitant]
  3. AZATHIOPRINE [Concomitant]
  4. CALCIUM CARBONATE [Concomitant]
  5. CEFUROXIME [Concomitant]
  6. FERROUS SULPHATE (FERROUS SULFATE) [Concomitant]
  7. FUROSEMIDE [Concomitant]
  8. MANNITOL [Concomitant]
  9. PREDNISOLONE [Concomitant]

REACTIONS (3)
  - BRAIN OEDEMA [None]
  - PULMONARY OEDEMA [None]
  - THROMBOTIC MICROANGIOPATHY [None]
